FAERS Safety Report 4777001-7 (Version None)
Quarter: 2005Q3

REPORT INFORMATION
  Report Type: 
  Country: None (occurrence: None)
  Receive Date: 20050915
  Receipt Date: 20050907
  Transmission Date: 20060218
  Serious: Yes (Other)
  Sender: FDA-Public Use
  Company Number: 2005-03339

PATIENT
  Age: 67 Year
  Sex: Male

DRUGS (4)
  1. TRIAMCINOLONE DIACETATE [Suspect]
     Indication: EYE DISORDER
     Dosage: 4 MG/0.1 ML SINGLE INTRAVITREAL
  2. TRIAMCINOLONE DIACETATE [Suspect]
     Indication: SCAR
     Dosage: 4 MG/0.1 ML SINGLE INTRAVITREAL
  3. ATORVASTATIN CALCIUM [Concomitant]
  4. WARFARIN SODIUM [Concomitant]

REACTIONS (6)
  - CONJUNCTIVAL DISORDER [None]
  - CONJUNCTIVAL HAEMORRHAGE [None]
  - INJECTION SITE HAEMORRHAGE [None]
  - INJECTION SITE NECROSIS [None]
  - INTENTIONAL MISUSE [None]
  - OFF LABEL USE [None]
